FAERS Safety Report 8119141-0 (Version None)
Quarter: 2012Q1

REPORT INFORMATION
  Report Type: 
  Country: None (occurrence: None)
  Receive Date: 20120207
  Receipt Date: 20120207
  Transmission Date: 20120608
  Serious: No
  Sender: FDA-Public Use
  Company Number: None

PATIENT
  Age: 48 Year
  Sex: Female
  Weight: 68.038 kg

DRUGS (1)
  1. NEULASTA [Suspect]
     Indication: BREAST CANCER
     Dosage: 6.0 MG
     Route: 058
     Dates: start: 20120128, end: 20120128

REACTIONS (4)
  - ABASIA [None]
  - DYSSTASIA [None]
  - BONE PAIN [None]
  - BACK PAIN [None]
